FAERS Safety Report 5279447-X (Version None)
Quarter: 2007Q1

REPORT INFORMATION
  Report Type: 
  Country: None (occurrence: None)
  Receive Date: 20070328
  Receipt Date: 20070313
  Transmission Date: 20070707
  Serious: Yes (Other)
  Sender: FDA-Public Use
  Company Number: US-SHR-US-2006-040583

PATIENT
  Age: 29 Year
  Sex: Female
  Weight: 47.619 kg

DRUGS (6)
  1. BETASERON [Suspect]
     Indication: RELAPSING-REMITTING MULTIPLE SCLEROSIS
     Dosage: 8 MIU, EVERY 2D
     Route: 058
     Dates: start: 20050301, end: 20060601
  2. BETASERON [Suspect]
     Dosage: 2 MIU, EVERY 2D
     Route: 058
     Dates: start: 20070102
  3. ZOLOFT [Concomitant]
     Indication: DEPRESSION
     Dosage: 100 MG, UNK
     Route: 048
     Dates: start: 20050601
  4. KLONOPIN [Concomitant]
     Indication: DEPRESSION
     Dosage: .5 MG, UNK
     Route: 048
     Dates: start: 20060501
  5. IBUPROFEN [Concomitant]
     Dosage: 200 MG, AS REQ'D
     Route: 048
  6. GEODON [Concomitant]
     Indication: DEPRESSION
     Route: 048
     Dates: start: 20060501

REACTIONS (6)
  - INFERTILITY FEMALE [None]
  - INJECTION SITE PAIN [None]
  - MULTIPLE SCLEROSIS [None]
  - NAUSEA [None]
  - PREMATURE MENOPAUSE [None]
  - VOMITING [None]
